FAERS Safety Report 9122989 (Version 2)
Quarter: 2013Q2

REPORT INFORMATION
  Report Type: Spontaneous
  Country: US (occurrence: US)
  Receive Date: 20130227
  Receipt Date: 20130425
  Transmission Date: 20140414
  Serious: Yes (Other)
  Sender: FDA-Public Use
  Company Number: US-PFIZER INC-2013066683

PATIENT
  Age: 25 Year
  Sex: Male
  Weight: 68.03 kg

DRUGS (1)
  1. XYNTHA [Suspect]
     Indication: FACTOR VIII DEFICIENCY
     Dosage: 50 IU/KG, WEEKLY (2X/WEEK)

REACTIONS (4)
  - Haemorrhage [Unknown]
  - Joint injury [Unknown]
  - Disease complication [Unknown]
  - Off label use [Unknown]
